FAERS Safety Report 9050644 (Version 1)
Quarter: 2013Q1

REPORT INFORMATION
  Report Type: Spontaneous
  Country: BR (occurrence: BR)
  Receive Date: 20130205
  Receipt Date: 20130205
  Transmission Date: 20140127
  Serious: Yes (Other)
  Sender: FDA-Public Use
  Company Number: BR-PFIZER INC-2013028159

PATIENT
  Sex: Female

DRUGS (3)
  1. PRISTIQ [Suspect]
  2. SILDENAFIL CITRATE [Suspect]
  3. SIBUTRAMINE [Suspect]

REACTIONS (4)
  - Dementia [Unknown]
  - Hepatic cirrhosis [Unknown]
  - Breast enlargement [Unknown]
  - Arthropathy [Unknown]
